FAERS Safety Report 6265482-1 (Version None)
Quarter: 2009Q3

REPORT INFORMATION
  Report Type: 
  Country: None (occurrence: None)
  Receive Date: 20090713
  Receipt Date: 20090703
  Transmission Date: 20100115
  Serious: Yes (Other)
  Sender: FDA-Public Use
  Company Number: PHHY2009GB22624

PATIENT
  Sex: Female
  Weight: 56.2 kg

DRUGS (9)
  1. RASILEZ [Suspect]
     Indication: HYPERTENSION
     Dosage: 150 MG, QD
     Route: 048
     Dates: start: 20090307, end: 20090324
  2. HYDRALAZINE HCL [Concomitant]
     Indication: HYPERTENSION
     Dosage: 100 MG, TID
     Route: 048
     Dates: start: 20020101
  3. DOXAZOSIN MESYLATE [Concomitant]
     Indication: BLOOD PRESSURE INCREASED
     Dosage: 8 MG, BID
     Route: 048
     Dates: start: 20020101
  4. FUROSEMIDE [Concomitant]
     Indication: BLOOD PRESSURE INCREASED
     Dosage: 80 MG, QD
     Route: 048
     Dates: start: 20020101
  5. NIFEDIPINE [Concomitant]
     Indication: BLOOD PRESSURE INCREASED
     Dosage: 120 MG, BID
     Route: 048
     Dates: start: 20020101
  6. SPIRONOLACTONE [Concomitant]
     Indication: BLOOD PRESSURE INCREASED
     Dosage: 100 MG, BID
     Route: 048
     Dates: start: 20020101
  7. ENALAPRIL [Concomitant]
     Indication: BLOOD PRESSURE INCREASED
     Dosage: 10 MG, QD
     Route: 048
  8. ASPIRIN [Concomitant]
     Dosage: 75 MG, QD
     Route: 048
     Dates: start: 20020101
  9. ATENOLOL [Concomitant]
     Indication: BLOOD PRESSURE INCREASED
     Dosage: 200 MG IN THE DAY AND 100 MG IN THE NIGHT
     Route: 048
     Dates: start: 20020101

REACTIONS (3)
  - BLOOD CREATINE PHOSPHOKINASE INCREASED [None]
  - MYALGIA [None]
  - MYOSITIS [None]
